FAERS Safety Report 11711354 (Version 1)
Quarter: 2015Q4

REPORT INFORMATION
  Report Type: Spontaneous
  Country: US (occurrence: US)
  Receive Date: 20151104
  Receipt Date: 20151104
  Transmission Date: 20160304
  Serious: No
  Sender: FDA-Public Use
  Company Number: US-ELI_LILLY_AND_COMPANY-US201105005659

PATIENT
  Age: 56 Year
  Sex: Female

DRUGS (2)
  1. FORTEO [Suspect]
     Active Substance: TERIPARATIDE
     Indication: OSTEOPOROSIS
     Dosage: 20 UG, QD
     Dates: start: 201101
  2. CALCIUM [Concomitant]
     Active Substance: CALCIUM
     Dosage: 800 MG, QD

REACTIONS (5)
  - Muscle spasms [Unknown]
  - Abdominal pain [Unknown]
  - Blood calcium increased [Unknown]
  - Vitamin D decreased [Unknown]
  - Asthenia [Unknown]

NARRATIVE: CASE EVENT DATE: 201104
